FAERS Safety Report 22926578 (Version 3)
Quarter: 2024Q2

REPORT INFORMATION
  Report Type: Report from Study
  Country: CL (occurrence: CL)
  Receive Date: 20230909
  Receipt Date: 20240412
  Transmission Date: 20240715
  Serious: Yes (Other)
  Sender: FDA-Public Use
  Company Number: CL-SANDOZ-SDZ2023CL008729

PATIENT
  Age: 13 Year
  Sex: Male
  Weight: 40 kg

DRUGS (5)
  1. OMNITROPE [Suspect]
     Active Substance: SOMATROPIN
     Dosage: UNK, SUREPAL 10
     Route: 065
  2. OMNITROPE [Suspect]
     Active Substance: SOMATROPIN
     Dosage: 1.6 MG, QD
     Route: 058
     Dates: start: 20220722
  3. OMNITROPE [Suspect]
     Active Substance: SOMATROPIN
     Dosage: 1.7 MG, QD (PERMANENTLY)
     Route: 065
     Dates: start: 20221108
  4. OMNITROPE [Suspect]
     Active Substance: SOMATROPIN
     Indication: Growth hormone deficiency
     Dosage: 3 DF, QD 3 IU (10 MG)
     Route: 058
     Dates: start: 20220722
  5. OMNITROPE [Suspect]
     Active Substance: SOMATROPIN
     Dosage: UNK
     Route: 065
     Dates: start: 202304

REACTIONS (12)
  - Spinal fracture [Unknown]
  - Femur fracture [Unknown]
  - Spinal fracture [Unknown]
  - Epiphyseal fracture [Unknown]
  - Bone lesion [Unknown]
  - Tibia fracture [Unknown]
  - Bone marrow oedema [Unknown]
  - Spondylolysis [Unknown]
  - Ligament sprain [Unknown]
  - Medication error [Unknown]
  - Wrong technique in device usage process [Unknown]
  - Device malfunction [Unknown]

NARRATIVE: CASE EVENT DATE: 20221001
